FAERS Safety Report 5647256-5 (Version None)
Quarter: 2008Q1

REPORT INFORMATION
  Report Type: 
  Country: None (occurrence: None)
  Receive Date: 20080228
  Receipt Date: 20080215
  Transmission Date: 20080703
  Serious: Yes (Other)
  Sender: FDA-Public Use
  Company Number: ENTC2008-0044

PATIENT
  Sex: Male

DRUGS (1)
  1. STALEVO 100 [Suspect]
     Dates: start: 20070401

REACTIONS (1)
  - INTERSTITIAL LUNG DISEASE [None]
